FAERS Safety Report 8550965-1 (Version None)
Quarter: 2012Q3

REPORT INFORMATION
  Report Type: 
  Country: None (occurrence: None)
  Receive Date: 20120730
  Receipt Date: 20120723
  Transmission Date: 20120928
  Serious: Yes (Hospitalization)
  Sender: FDA-Public Use
  Company Number: US-PFIZER INC-2012165667

PATIENT
  Sex: Female

DRUGS (2)
  1. ZYVOX [Suspect]
     Indication: WOUND INFECTION STAPHYLOCOCCAL
  2. ZYVOX [Suspect]
     Indication: STAPHYLOCOCCAL INFECTION
     Dosage: 600 MG, 2X/DAY
     Route: 048
     Dates: start: 20120628, end: 20120705

REACTIONS (2)
  - NEUROPATHY PERIPHERAL [None]
  - DIARRHOEA [None]
